FAERS Safety Report 7800892 (Version 5)
Quarter: 2013Q2

REPORT INFORMATION
  Report Type: Spontaneous
  Country: US (occurrence: US)
  Receive Date: 20110207
  Receipt Date: 20130510
  Transmission Date: 20140414
  Serious: Yes (Hospitalization)
  Sender: FDA-Public Use
  Company Number: US-BIOGENIDEC-2011BI003217

PATIENT
  Age: 62 Year
  Sex: Female

DRUGS (2)
  1. TYSABRI [Suspect]
     Indication: MULTIPLE SCLEROSIS
     Route: 042
     Dates: start: 20080929
  2. TYSABRI [Suspect]
     Indication: MULTIPLE SCLEROSIS
     Route: 042
     Dates: end: 201301

REACTIONS (9)
  - Secondary progressive multiple sclerosis [Not Recovered/Not Resolved]
  - Bullous impetigo [Unknown]
  - Neurodermatitis [Unknown]
  - Folliculitis [Unknown]
  - Ankle fracture [Recovered/Resolved]
  - Fall [Recovered/Resolved]
  - Pelvic fracture [Not Recovered/Not Resolved]
  - Burning sensation [Not Recovered/Not Resolved]
  - Palpitations [Recovered/Resolved]
